FAERS Safety Report 7450177-9 (Version None)
Quarter: 2011Q2

REPORT INFORMATION
  Report Type: 
  Country: None (occurrence: None)
  Receive Date: 20110502
  Receipt Date: 20110427
  Transmission Date: 20111010
  Serious: No
  Sender: FDA-Public Use
  Company Number: US-PFIZER INC-2010124683

PATIENT
  Sex: Male
  Weight: 72.562 kg

DRUGS (9)
  1. LYRICA [Suspect]
     Indication: PAIN
     Dosage: 75 MG, 1X/DAY
  2. VICODIN [Concomitant]
     Indication: PAIN
     Dosage: 5 MG, AS NEEDED
  3. ALLOPURINOL [Concomitant]
     Dosage: UNK
  4. LYRICA [Suspect]
     Indication: NECK PAIN
     Dosage: 1000, UNK
     Dates: start: 20100928
  5. LYRICA [Suspect]
     Indication: ARTHRALGIA
     Dosage: 150 MG, 2X/DAY
     Route: 048
  6. LAMICTAL [Concomitant]
     Indication: PAIN
     Dosage: UNK
     Dates: start: 20000101, end: 20100901
  7. LYRICA [Suspect]
     Indication: PAIN IN EXTREMITY
     Dosage: 75 MG, 2X/DAY
  8. PROTONIX [Concomitant]
     Dosage: UNK
  9. ACETYLSALICYLIC ACID [Concomitant]
     Dosage: UNK

REACTIONS (3)
  - TREMOR [None]
  - DRUG INEFFECTIVE [None]
  - FEELING DRUNK [None]
